FAERS Safety Report 23996378 (Version 1)
Quarter: 2024Q2

REPORT INFORMATION
  Report Type: Spontaneous
  Country: CA (occurrence: None)
  Receive Date: 20240620
  Receipt Date: 20240620
  Transmission Date: 20240716
  Serious: Yes (Other)
  Sender: FDA-Public Use
  Company Number: 2024A139038

PATIENT
  Sex: Female

DRUGS (83)
  1. QUETIAPINE FUMARATE [Suspect]
     Active Substance: QUETIAPINE FUMARATE
  2. ABACAVIR [Suspect]
     Active Substance: ABACAVIR
  3. ABACAVIR [Suspect]
     Active Substance: ABACAVIR
  4. ACETAMINOPHEN [Suspect]
     Active Substance: ACETAMINOPHEN
  5. ACTEMRA [Suspect]
     Active Substance: TOCILIZUMAB
     Indication: Rheumatoid arthritis
     Route: 058
  6. ACTEMRA [Suspect]
     Active Substance: TOCILIZUMAB
     Indication: Rheumatoid arthritis
     Route: 058
  7. ACTEMRA [Suspect]
     Active Substance: TOCILIZUMAB
     Indication: Rheumatoid arthritis
     Route: 058
  8. ACTEMRA [Suspect]
     Active Substance: TOCILIZUMAB
     Indication: Rheumatoid arthritis
     Route: 058
  9. ACTEMRA [Suspect]
     Active Substance: TOCILIZUMAB
     Indication: Rheumatoid arthritis
     Route: 058
  10. ADVAIR HFA [Suspect]
     Active Substance: FLUTICASONE PROPIONATE\SALMETEROL XINAFOATE
     Indication: Rheumatoid arthritis
  11. ADVAIR HFA [Suspect]
     Active Substance: FLUTICASONE PROPIONATE\SALMETEROL XINAFOATE
     Indication: Rheumatoid arthritis
  12. ADVAIR HFA [Suspect]
     Active Substance: FLUTICASONE PROPIONATE\SALMETEROL XINAFOATE
     Indication: Rheumatoid arthritis
  13. ALBUTEROL SULFATE [Suspect]
     Active Substance: ALBUTEROL SULFATE
  14. ALBUTEROL SULFATE [Suspect]
     Active Substance: ALBUTEROL SULFATE
  15. ALBUTEROL [Suspect]
     Active Substance: ALBUTEROL
  16. PANTOPRAZOLE SODIUM ANHYDROUS [Suspect]
     Active Substance: PANTOPRAZOLE SODIUM ANHYDROUS
  17. BUPROPION HYDROCHLORIDE [Suspect]
     Active Substance: BUPROPION HYDROCHLORIDE
  18. CETIRIZINE HYDROCHLORIDE [Suspect]
     Active Substance: CETIRIZINE HYDROCHLORIDE
  19. CHLORMEZANONE [Suspect]
     Active Substance: CHLORMEZANONE
     Dosage: UNKNOWN
  20. CITALOPRAM HYDROBROMIDE [Suspect]
     Active Substance: CITALOPRAM HYDROBROMIDE
  21. CLONIDINE [Suspect]
     Active Substance: CLONIDINE
     Dosage: UNKNOWN
  22. CODEINE [Suspect]
     Active Substance: CODEINE
  23. CRINONE [Suspect]
     Active Substance: PROGESTERONE
  24. CYCLOBENZAPRINE [Suspect]
     Active Substance: CYCLOBENZAPRINE
  25. DEMEROL [Suspect]
     Active Substance: MEPERIDINE HYDROCHLORIDE
     Dosage: UNKNOWN
  26. DICLOFENAC SODIUM [Suspect]
     Active Substance: DICLOFENAC\DICLOFENAC SODIUM
     Dosage: UNKNOWN
  27. DIPHENHYDRAMINE [Suspect]
     Active Substance: DIPHENHYDRAMINE
  28. DIPHENHYDRAMINE [Suspect]
     Active Substance: DIPHENHYDRAMINE
  29. DIPHENHYDRAMINE [Suspect]
     Active Substance: DIPHENHYDRAMINE
  30. DIPHENHYDRAMINE [Suspect]
     Active Substance: DIPHENHYDRAMINE
  31. DIPHENHYDRAMINE [Suspect]
     Active Substance: DIPHENHYDRAMINE
  32. FLOVENT [Suspect]
     Active Substance: FLUTICASONE PROPIONATE
  33. FLUCONAZOLE [Suspect]
     Active Substance: FLUCONAZOLE
     Dosage: UNKNOWN
  34. FLUTICASONE PROPIONATE [Suspect]
     Active Substance: FLUTICASONE PROPIONATE
  35. FLUTICASONE PROPIONATE [Suspect]
     Active Substance: FLUTICASONE PROPIONATE
  36. FLUTICASONE PROPIONATE [Suspect]
     Active Substance: FLUTICASONE PROPIONATE
  37. FUROSEMIDE [Suspect]
     Active Substance: FUROSEMIDE
     Dosage: UNKNOWN
  38. GABAPENTIN [Suspect]
     Active Substance: GABAPENTIN
  39. HUMIRA [Suspect]
     Active Substance: ADALIMUMAB
     Route: 058
  40. HYDROMORPHONE [Suspect]
     Active Substance: HYDROMORPHONE
     Dosage: UNKNOWN
  41. HYDROMORPHONE HYDROCHLORIDE [Suspect]
     Active Substance: HYDROMORPHONE HYDROCHLORIDE
  42. HYDROMORPHONE HYDROCHLORIDE [Suspect]
     Active Substance: HYDROMORPHONE HYDROCHLORIDE
  43. KETOPROFEN [Suspect]
     Active Substance: KETOPROFEN
  44. METHYLPREDNISOLONE ACETATE [Suspect]
     Active Substance: METHYLPREDNISOLONE ACETATE
  45. METHYLPREDNISOLONE ACETATE [Suspect]
     Active Substance: METHYLPREDNISOLONE ACETATE
  46. METHYLPREDNISOLONE ACETATE [Suspect]
     Active Substance: METHYLPREDNISOLONE ACETATE
  47. MONTELUKAST SODIUM [Suspect]
     Active Substance: MONTELUKAST SODIUM
  48. MOXIFLOXACIN HYDROCHLORIDE [Suspect]
     Active Substance: MOXIFLOXACIN HYDROCHLORIDE\MOXIFLOXACIN HYDROCHLORIDE MONOHYDRATE
  49. NORTRIPTYLINE HYDROCHLORIDE [Suspect]
     Active Substance: NORTRIPTYLINE HYDROCHLORIDE
  50. NORTRIPTYLINE HYDROCHLORIDE [Suspect]
     Active Substance: NORTRIPTYLINE HYDROCHLORIDE
  51. ONDANSETRON [Suspect]
     Active Substance: ONDANSETRON
  52. ORENCIA [Suspect]
     Active Substance: ABATACEPT
     Route: 042
  53. PANTOPRAZOLE [Suspect]
     Active Substance: PANTOPRAZOLE
     Dosage: UNKNOWN
  54. PANTOPRAZOLE MAGNESIUM [Suspect]
     Active Substance: PANTOPRAZOLE MAGNESIUM
     Dosage: UNKNOWN
  55. PANTOPRAZOLE MAGNESIUM [Suspect]
     Active Substance: PANTOPRAZOLE MAGNESIUM
     Dosage: UNKNOWN
  56. HERBALS\PLANTAGO OVATA LEAF [Suspect]
     Active Substance: HERBALS\PLANTAGO OVATA LEAF
  57. PROGESTERONE [Suspect]
     Active Substance: PROGESTERONE
  58. PROGESTERONE [Suspect]
     Active Substance: PROGESTERONE
  59. PROGESTERONE [Suspect]
     Active Substance: PROGESTERONE
  60. PROGESTERONE [Suspect]
     Active Substance: PROGESTERONE
  61. PROGESTERONE [Suspect]
     Active Substance: PROGESTERONE
     Route: 030
  62. PROGESTERONE [Suspect]
     Active Substance: PROGESTERONE
  63. PSYLLIUM HUSK [Suspect]
     Active Substance: PSYLLIUM HUSK
  64. RANITIDINE HYDROCHLORIDE [Suspect]
     Active Substance: RANITIDINE HYDROCHLORIDE
  65. CETIRIZINE HYDROCHLORIDE [Suspect]
     Active Substance: CETIRIZINE HYDROCHLORIDE
  66. CETIRIZINE HYDROCHLORIDE [Suspect]
     Active Substance: CETIRIZINE HYDROCHLORIDE
  67. REMICADE [Suspect]
     Active Substance: INFLIXIMAB
  68. RESTORIL [Suspect]
     Active Substance: TEMAZEPAM
  69. RITUXIMAB [Suspect]
     Active Substance: RITUXIMAB
     Indication: Rheumatoid arthritis
     Route: 042
  70. RITUXIMAB [Suspect]
     Active Substance: RITUXIMAB
     Indication: Rheumatoid arthritis
     Route: 042
  71. ALBUTEROL [Suspect]
     Active Substance: ALBUTEROL
  72. SENNA LEAF [Suspect]
     Active Substance: SENNA LEAF
  73. SINGULAIR [Suspect]
     Active Substance: MONTELUKAST SODIUM
  74. PANTOPRAZOLE MAGNESIUM [Suspect]
     Active Substance: PANTOPRAZOLE MAGNESIUM
  75. TEMAZEPAM [Suspect]
     Active Substance: TEMAZEPAM
  76. TOCILIZUMAB [Suspect]
     Active Substance: TOCILIZUMAB
  77. TOCILIZUMAB [Suspect]
     Active Substance: TOCILIZUMAB
     Route: 058
  78. TYLENOL [Suspect]
     Active Substance: ACETAMINOPHEN
  79. VENLAFAXINE HYDROCHLORIDE [Suspect]
     Active Substance: VENLAFAXINE HYDROCHLORIDE
  80. VENTOLIN [Suspect]
     Active Substance: ALBUTEROL SULFATE
  81. WELLBUTRIN [Suspect]
     Active Substance: BUPROPION HYDROCHLORIDE
  82. ZOPICLONE [Suspect]
     Active Substance: ZOPICLONE
  83. DOLUTEGRAVIR SODIUM [Concomitant]
     Active Substance: DOLUTEGRAVIR SODIUM

REACTIONS (9)
  - Asthma [Not Recovered/Not Resolved]
  - Exposure during pregnancy [Not Recovered/Not Resolved]
  - Infection [Not Recovered/Not Resolved]
  - Pyrexia [Not Recovered/Not Resolved]
  - Rash [Not Recovered/Not Resolved]
  - Rash erythematous [Not Recovered/Not Resolved]
  - Rheumatoid arthritis [Not Recovered/Not Resolved]
  - Thrombocytopenia [Not Recovered/Not Resolved]
  - Upper respiratory tract infection [Not Recovered/Not Resolved]
